FAERS Safety Report 12288814 (Version 2)
Quarter: 2016Q3

REPORT INFORMATION
  Report Type: Report from Study
  Country: DE (occurrence: DE)
  Receive Date: 20160421
  Receipt Date: 20160804
  Transmission Date: 20161109
  Serious: Yes (Hospitalization)
  Sender: FDA-Public Use
  Company Number: DE-ROCHE-1694887

PATIENT
  Age: 74 Year
  Sex: Male

DRUGS (6)
  1. AZATHIOPRIN [Suspect]
     Active Substance: AZATHIOPRINE
     Route: 065
  2. ARCOXIA [Concomitant]
     Active Substance: ETORICOXIB
  3. PREDNISOLON [Concomitant]
     Active Substance: PREDNISOLONE
  4. AZATHIOPRIN [Suspect]
     Active Substance: AZATHIOPRINE
     Indication: RHEUMATOID ARTHRITIS
     Route: 065
  5. TOCILIZUMAB [Suspect]
     Active Substance: TOCILIZUMAB
     Indication: RHEUMATOID ARTHRITIS
     Route: 065
     Dates: start: 20150707, end: 20150806
  6. AZATHIOPRIN [Suspect]
     Active Substance: AZATHIOPRINE
     Route: 065

REACTIONS (2)
  - Synovitis [Recovered/Resolved]
  - Postoperative wound complication [Unknown]

NARRATIVE: CASE EVENT DATE: 20150903
